FAERS Safety Report 19647014 (Version 3)
Quarter: 2024Q4

REPORT INFORMATION
  Report Type: Other
  Country: CA (occurrence: CA)
  Receive Date: 20210802
  Receipt Date: 20241023
  Transmission Date: 20250115
  Serious: Yes (Hospitalization, Other)
  Sender: APOTEX
  Company Number: CA-APOTEX-2021AP021688

PATIENT
  Age: 82 Year
  Sex: Female

DRUGS (9)
  1. ALBUTEROL [Suspect]
     Active Substance: ALBUTEROL
     Indication: Asthma
     Dosage: UNK
     Route: 065
  2. FLUTICASONE FUROATE [Suspect]
     Active Substance: FLUTICASONE FUROATE
     Indication: Asthma
     Dosage: 200 MICROGRAM
     Route: 065
  3. BENRALIZUMAB [Suspect]
     Active Substance: BENRALIZUMAB
     Indication: Asthma
     Dosage: UNK
     Route: 058
  4. DEFLAZACORT [Suspect]
     Active Substance: DEFLAZACORT
     Indication: Asthma
     Dosage: 30 MILLIGRAM
     Route: 065
  5. METHYLPREDNISOLONE [Suspect]
     Active Substance: METHYLPREDNISOLONE
     Indication: Asthma
     Dosage: UNK
     Route: 065
  6. AZITHROMYCIN [Concomitant]
     Active Substance: AZITHROMYCIN
     Indication: Asthma
     Dosage: UNK
     Route: 065
  7. TIOTROPIUM [Concomitant]
     Active Substance: TIOTROPIUM
     Indication: Asthma
     Dosage: UNK
     Route: 065
  8. VILANTEROL [Concomitant]
     Active Substance: VILANTEROL
     Indication: Asthma
     Dosage: 25 MICROGRAM
     Route: 065
  9. VILANTEROL [Concomitant]
     Active Substance: VILANTEROL
     Dosage: 25 MILLIGRAM
     Route: 065

REACTIONS (3)
  - Pneumocystis jirovecii infection [Recovering/Resolving]
  - Asthma [Recovering/Resolving]
  - Drug ineffective [Recovering/Resolving]
